FAERS Safety Report 4531290-2 (Version None)
Quarter: 2004Q4

REPORT INFORMATION
  Report Type: 
  Country: None (occurrence: None)
  Receive Date: 20041206
  Receipt Date: 20041006
  Transmission Date: 20050328
  Serious: No
  Sender: FDA-Public Use
  Company Number: USA041080313

PATIENT
  Age: 39 Year
  Sex: Female
  Weight: 83 kg

DRUGS (2)
  1. CYMBALTA [Suspect]
     Indication: DEATH
     Dosage: 30 MG/1 DAY
     Dates: start: 20041004, end: 20041004
  2. CYMBALTA [Suspect]
     Indication: EMOTIONAL DISORDER
     Dosage: 30 MG/1 DAY
     Dates: start: 20041004, end: 20041004

REACTIONS (6)
  - BRUXISM [None]
  - HYPERTONIA [None]
  - STOMACH DISCOMFORT [None]
  - THINKING ABNORMAL [None]
  - TOOTH INJURY [None]
  - TREMOR [None]
